FAERS Safety Report 9777382 (Version 2)
Quarter: 2014Q1

REPORT INFORMATION
  Report Type: Report from Study
  Country: FR (occurrence: FR)
  Receive Date: 20131221
  Receipt Date: 20140106
  Transmission Date: 20141002
  Serious: Yes (Life-Threatening, Hospitalization)
  Sender: FDA-Public Use
  Company Number: PHHO2013FR016402

PATIENT
  Sex: 0

DRUGS (19)
  1. RAD 666 / RAD 001A [Suspect]
     Indication: HEART TRANSPLANT
     Dosage: 1.50
     Dates: start: 20100511
  2. NEORAL [Suspect]
     Indication: HEART TRANSPLANT
     Dosage: 70
     Dates: start: 20100922
  3. LASILIX [Concomitant]
     Indication: DIURETIC THERAPY
     Dosage: 250 MG, UNK
     Dates: start: 19890514, end: 20100820
  4. LASILIX [Concomitant]
     Dosage: 500 MG, UNK
     Dates: start: 20100821
  5. APROVEL [Concomitant]
     Indication: PROPHYLAXIS
     Dosage: 75 MG, UNK
     Dates: start: 20091120, end: 20120307
  6. SOTALEX [Concomitant]
     Indication: ARRHYTHMIA PROPHYLAXIS
     Dosage: 80 MG, UNK
     Dates: start: 20091120, end: 20100917
  7. SOTALEX [Concomitant]
     Dosage: 40 MG, UNK
     Dates: start: 20100918, end: 20110516
  8. PREVISCAN [Concomitant]
     Indication: ANTICOAGULANT THERAPY
     Dosage: 10 MG, UNK
     Dates: start: 20110516, end: 20120307
  9. PREVISCAN [Concomitant]
     Dosage: 10 OR 15 MG ALTERNATIVELY
     Dates: start: 20120308
  10. KARDEGIC [Concomitant]
     Indication: ANTIPLATELET THERAPY
     Dosage: 160 MG, UNK
     Dates: start: 20090717, end: 20110516
  11. KARDEGIC [Concomitant]
     Dosage: 75 MG, UNK
     Dates: start: 20110517
  12. ELISOR [Concomitant]
     Indication: HYPERCHOLESTEROLAEMIA
     Dosage: 20 MG, UNK
     Dates: start: 20090303, end: 20110516
  13. SERETIDE [Concomitant]
     Dosage: 500 UG, UNK
     Dates: start: 20110218
  14. VIDORA [Concomitant]
     Indication: MIGRAINE PROPHYLAXIS
     Dosage: 1 DF (CP)
     Dates: start: 20090417
  15. MIMPARA [Concomitant]
     Indication: HYPERPARATHYROIDISM
     Dosage: 30 MG, UNK
     Dates: start: 20090717
  16. RIVOTRIL [Concomitant]
     Indication: PAIN
     Dosage: 10 MG, UNK
     Dates: start: 20110218
  17. TANGANIL [Concomitant]
     Indication: DIZZINESS
     Dosage: 3 DF CP (TABLET)
     Dates: start: 201102, end: 20110218
  18. DOLIPRANE [Concomitant]
     Indication: PAIN
     Dosage: 6 DF CP (TABLET)
     Dates: start: 20090717, end: 20110218
  19. ADVACAL//CALCIUM [Concomitant]
     Indication: MINERAL SUPPLEMENTATION
     Dosage: 1 SACHET
     Dates: start: 20090926

REACTIONS (1)
  - Atrial thrombosis [Not Recovered/Not Resolved]
